FAERS Safety Report 21131173 (Version 1)
Quarter: 2022Q3

REPORT INFORMATION
  Report Type: Spontaneous
  Country: JP (occurrence: JP)
  Receive Date: 20220726
  Receipt Date: 20220726
  Transmission Date: 20221026
  Serious: Yes (Other)
  Sender: FDA-Public Use
  Company Number: JP-TAKEDA-2022TJP067141

PATIENT

DRUGS (1)
  1. CABOMETYX [Suspect]
     Active Substance: CABOZANTINIB S-MALATE
     Indication: Hepatocellular carcinoma
     Dosage: UNK
     Route: 065

REACTIONS (16)
  - Carnitine deficiency [Unknown]
  - Aldolase increased [Unknown]
  - Hypothyroidism [Unknown]
  - Diarrhoea [Unknown]
  - Proteinuria [Unknown]
  - Platelet count decreased [Unknown]
  - Malaise [Unknown]
  - Blood creatine phosphokinase increased [Unknown]
  - Decreased appetite [Unknown]
  - Palmar-plantar erythrodysaesthesia syndrome [Unknown]
  - Hypertension [Unknown]
  - Aspartate aminotransferase increased [Unknown]
  - Alanine aminotransferase increased [Unknown]
  - Diarrhoea [Unknown]
  - Proteinuria [Unknown]
  - Platelet count decreased [Unknown]
